FAERS Safety Report 8417834-9 (Version None)
Quarter: 2012Q2

REPORT INFORMATION
  Report Type: 
  Country: None (occurrence: None)
  Receive Date: 20120607
  Receipt Date: 20120604
  Transmission Date: 20120825
  Serious: No
  Sender: FDA-Public Use
  Company Number: US-PFIZER INC-2012115729

PATIENT
  Sex: Female
  Weight: 81.633 kg

DRUGS (2)
  1. MELOXICAM [Concomitant]
     Indication: ARTHRITIS
     Dosage: 15 MG, AS NEEDED
     Dates: start: 20120101
  2. CHANTIX [Suspect]
     Indication: SMOKING CESSATION THERAPY
     Dosage: UNK, 2X/DAY
     Dates: start: 20120301, end: 20120411

REACTIONS (4)
  - INFLUENZA [None]
  - NASOPHARYNGITIS [None]
  - HYPERSENSITIVITY [None]
  - MALAISE [None]
